FAERS Safety Report 5226776-1 (Version None)
Quarter: 2007Q1

REPORT INFORMATION
  Report Type: 
  Country: None (occurrence: None)
  Receive Date: 20070130
  Receipt Date: 20070115
  Transmission Date: 20070707
  Serious: Yes (Life-Threatening, Hospitalization)
  Sender: FDA-Public Use
  Company Number: POMP-10934

PATIENT
  Age: 8 Year
  Sex: Female

DRUGS (3)
  1. MYOZYME [Suspect]
     Indication: GLYCOGEN STORAGE DISEASE TYPE II
  2. ZYRTEC [Concomitant]
  3. HYDROCORTISONE [Concomitant]

REACTIONS (7)
  - ABDOMINAL PAIN UPPER [None]
  - BRADYCARDIA [None]
  - BRONCHOSPASM [None]
  - CARDIAC ARREST [None]
  - GASTROENTERITIS [None]
  - INFUSION RELATED REACTION [None]
  - OEDEMA [None]
